FAERS Safety Report 5537863-2 (Version None)
Quarter: 2007Q4

REPORT INFORMATION
  Report Type: 
  Country: None (occurrence: None)
  Receive Date: 20071207
  Receipt Date: 20071127
  Transmission Date: 20080405
  Serious: Yes (Hospitalization, Other)
  Sender: FDA-Public Use
  Company Number: IT-ABBOTT-07P-083-0426208-00

PATIENT
  Age: 26 Year
  Sex: Male

DRUGS (5)
  1. CYCLOSPORINE [Suspect]
     Indication: DRUG USE FOR UNKNOWN INDICATION
     Dosage: NOT REPORTED
  2. CYCLOSPORINE [Suspect]
     Dosage: NOT REPORTED
  3. CYCLOSPORINE [Suspect]
     Dosage: NOT REPORTED
  4. RABBIT ANTITHYMOCYTE GLOBULIN [Concomitant]
     Indication: DRUG USE FOR UNKNOWN INDICATION
     Dosage: NOT REPORTED
  5. RABBIT ANTITHYMOCYTE GLOBULIN [Concomitant]
     Dosage: NOT REPORTED

REACTIONS (2)
  - EPSTEIN-BARR VIRUS INFECTION [None]
  - PNEUMONIA [None]
